FAERS Safety Report 8307015-1 (Version None)
Quarter: 2012Q2

REPORT INFORMATION
  Report Type: 
  Country: None (occurrence: None)
  Receive Date: 20120424
  Receipt Date: 20120416
  Transmission Date: 20120825
  Serious: Yes (Death)
  Sender: FDA-Public Use
  Company Number: PHHY2012HT031240

PATIENT
  Sex: Female

DRUGS (3)
  1. GLEEVEC [Suspect]
     Indication: CHRONIC MYELOID LEUKAEMIA
     Dosage: 400 MG, UNK
     Route: 048
     Dates: start: 20100401
  2. GLEEVEC [Suspect]
     Dosage: 600 MG, UNK
     Route: 048
  3. IRON [Concomitant]
     Indication: ANAEMIA

REACTIONS (2)
  - DEATH [None]
  - DEAFNESS [None]
